FAERS Safety Report 24739799 (Version 2)
Quarter: 2025Q1

REPORT INFORMATION
  Report Type: Spontaneous
  Country: US (occurrence: US)
  Receive Date: 20241216
  Receipt Date: 20250313
  Transmission Date: 20250408
  Serious: No
  Sender: SANOFI AVENTIS
  Company Number: US-SA-2024SA369006

PATIENT
  Age: 88 Year
  Sex: Male

DRUGS (1)
  1. DUPIXENT [Suspect]
     Active Substance: DUPILUMAB
     Indication: Dermatitis atopic
     Dosage: 300 MG, QOW
     Route: 058

REACTIONS (6)
  - Skin atrophy [Unknown]
  - Skin swelling [Not Recovered/Not Resolved]
  - Skin hypertrophy [Unknown]
  - Pruritus [Unknown]
  - Skin haemorrhage [Unknown]
  - Drug ineffective [Unknown]
